FAERS Safety Report 21987823 (Version 1)
Quarter: 2023Q1

REPORT INFORMATION
  Report Type: Report from Study
  Country: BR (occurrence: BR)
  Receive Date: 20230214
  Receipt Date: 20230214
  Transmission Date: 20230418
  Serious: Yes (Disabling, Other)
  Sender: FDA-Public Use
  Company Number: BR-CELLTRION INC.-2023BR002248

PATIENT

DRUGS (2)
  1. INFLIXIMAB [Suspect]
     Active Substance: INFLIXIMAB
     Indication: Crohn^s disease
     Dosage: 3 AMPOULES, EVERY 6 WEEKS
     Route: 042
     Dates: start: 20230124
  2. ETHINYL ESTRADIOL\GESTODENE [Concomitant]
     Active Substance: ETHINYL ESTRADIOL\GESTODENE
     Indication: Endometriosis
     Dosage: 1 CAPSULE PER DAY
     Route: 048

REACTIONS (7)
  - Gastrointestinal pain [Not Recovered/Not Resolved]
  - Swelling [Not Recovered/Not Resolved]
  - Anal abscess [Unknown]
  - Abscess intestinal [Unknown]
  - Product availability issue [Unknown]
  - Treatment delayed [Unknown]
  - Drug ineffective [Unknown]
